FAERS Safety Report 5673832-X (Version None)
Quarter: 2008Q2

REPORT INFORMATION
  Report Type: 
  Country: None (occurrence: None)
  Receive Date: 20080226
  Receipt Date: 20070727
  Transmission Date: 20081010
  Serious: Yes (Other)
  Sender: FDA-Public Use
  Company Number: 509162

PATIENT
  Age: 15 Year
  Sex: Female
  Weight: 71.7 kg

DRUGS (1)
  1. ACCUTANE [Suspect]
     Indication: ACNE CYSTIC
     Dosage: 40 MG  1 PER DAY
     Dates: start: 20070620

REACTIONS (2)
  - ADVERSE EVENT [None]
  - BLOOD TRIGLYCERIDES INCREASED [None]
